FAERS Safety Report 4437268-1 (Version None)
Quarter: 2004Q3

REPORT INFORMATION
  Report Type: 
  Country: None (occurrence: None)
  Receive Date: 20040728
  Receipt Date: 20040420
  Transmission Date: 20050211
  Serious: No
  Sender: FDA-Public Use
  Company Number: WAES 0402USA00268

PATIENT
  Age: 67 Year
  Sex: Female
  Weight: 57.1532 kg

DRUGS (9)
  1. EMEND [Suspect]
     Indication: CHEMOTHERAPY
     Dosage: SEE IMAGE
     Route: 048
     Dates: start: 20040115, end: 20040115
  2. EMEND [Suspect]
     Indication: PROPHYLAXIS
     Dosage: SEE IMAGE
     Route: 048
     Dates: start: 20040115, end: 20040115
  3. EMEND [Suspect]
     Indication: CHEMOTHERAPY
     Dosage: SEE IMAGE
     Route: 048
     Dates: start: 20040116, end: 20040117
  4. EMEND [Suspect]
     Indication: PROPHYLAXIS
     Dosage: SEE IMAGE
     Route: 048
     Dates: start: 20040116, end: 20040117
  5. ADRIAMYCIN PFS [Concomitant]
  6. CYTOXAN [Concomitant]
  7. TAGAMET [Concomitant]
  8. TAXOL [Concomitant]
  9. [THERAPY UNSPECIFIED] [Concomitant]

REACTIONS (1)
  - RASH ERYTHEMATOUS [None]
